FAERS Safety Report 12755375 (Version 5)
Quarter: 2018Q1

REPORT INFORMATION
  Report Type: Spontaneous
  Country: JP (occurrence: JP)
  Receive Date: 20160916
  Receipt Date: 20180214
  Transmission Date: 20180508
  Serious: Yes (Other)
  Sender: FDA-Public Use
  Company Number: JP-SA-2016SA169715

PATIENT
  Age: 40 Year
  Sex: Female
  Weight: 80 kg

DRUGS (12)
  1. JANUVIA [Suspect]
     Active Substance: SITAGLIPTIN PHOSPHATE
     Indication: DIABETES MELLITUS
     Route: 048
     Dates: start: 20160911, end: 20160911
  2. METGLUCO [Suspect]
     Active Substance: METFORMIN HYDROCHLORIDE
     Indication: DIABETES MELLITUS
     Route: 048
  3. JANUVIA [Suspect]
     Active Substance: SITAGLIPTIN PHOSPHATE
     Indication: DIABETES MELLITUS
     Route: 048
  4. JANUVIA [Suspect]
     Active Substance: SITAGLIPTIN PHOSPHATE
     Indication: DIABETES MELLITUS
     Route: 048
  5. AMARYL [Suspect]
     Active Substance: GLIMEPIRIDE
     Indication: SUICIDE ATTEMPT
     Dosage: FREQUENCY- 1 MG X 10
     Route: 048
     Dates: start: 20160911, end: 20160911
  6. AMARYL [Suspect]
     Active Substance: GLIMEPIRIDE
     Indication: SUICIDE ATTEMPT
     Route: 048
  7. AMARYL [Suspect]
     Active Substance: GLIMEPIRIDE
     Indication: SUICIDE ATTEMPT
     Route: 048
  8. AMARYL [Suspect]
     Active Substance: GLIMEPIRIDE
     Indication: DIABETES MELLITUS
     Dosage: FREQUENCY- 1 MG X 10
     Route: 048
     Dates: start: 20160911, end: 20160911
  9. AMARYL [Suspect]
     Active Substance: GLIMEPIRIDE
     Indication: DIABETES MELLITUS
     Route: 048
  10. METGLUCO [Suspect]
     Active Substance: METFORMIN HYDROCHLORIDE
     Indication: DIABETES MELLITUS
     Route: 048
     Dates: start: 20160911, end: 20160911
  11. AMARYL [Suspect]
     Active Substance: GLIMEPIRIDE
     Indication: DIABETES MELLITUS
     Route: 048
  12. METGLUCO [Suspect]
     Active Substance: METFORMIN HYDROCHLORIDE
     Indication: DIABETES MELLITUS
     Route: 048

REACTIONS (3)
  - Intentional overdose [Unknown]
  - Hypoglycaemia [Recovering/Resolving]
  - Suicide attempt [Unknown]

NARRATIVE: CASE EVENT DATE: 20160911
